FAERS Safety Report 5760179-6 (Version None)
Quarter: 2008Q2

REPORT INFORMATION
  Report Type: 
  Country: None (occurrence: None)
  Receive Date: 20080605
  Receipt Date: 20080512
  Transmission Date: 20081010
  Serious: No
  Sender: FDA-Public Use
  Company Number: US-BOEHRINGER INGELHEIM GMBH, GERMANY-2008-BP-07436BP

PATIENT
  Sex: Male

DRUGS (3)
  1. FLOMAX [Suspect]
     Indication: BENIGN PROSTATIC HYPERPLASIA
     Dates: start: 20050101
  2. FLOMAX [Suspect]
     Indication: PROSTATOMEGALY
  3. CRESTOR [Concomitant]

REACTIONS (1)
  - DRUG INEFFECTIVE [None]
